FAERS Safety Report 5465593-4 (Version None)
Quarter: 2007Q3

REPORT INFORMATION
  Report Type: 
  Country: None (occurrence: None)
  Receive Date: 20070919
  Receipt Date: 20070907
  Transmission Date: 20080115
  Serious: Yes (Other)
  Sender: FDA-Public Use
  Company Number: 2007325956

PATIENT
  Sex: Female

DRUGS (3)
  1. ROGAINE 5 [Suspect]
     Indication: ALOPECIA
     Dosage: TOPICAL
     Route: 061
  2. DICLOFENAC SODIUM [Suspect]
     Indication: OSTEOARTHRITIS
  3. PROSCAR [Suspect]
     Indication: ALOPECIA
     Dosage: 1/2 TABLET DAILY (1 IN 1 D), ORAL
     Route: 048

REACTIONS (1)
  - DERMATITIS CONTACT [None]
